FAERS Safety Report 4766849-0 (Version None)
Quarter: 2005Q3

REPORT INFORMATION
  Report Type: 
  Country: None (occurrence: None)
  Receive Date: 20050909
  Receipt Date: 20050902
  Transmission Date: 20060218
  Serious: Yes (Hospitalization)
  Sender: FDA-Public Use
  Company Number: 2005-132143-NL

PATIENT
  Age: 55 Year
  Sex: Male

DRUGS (9)
  1. ROCURONIUM BROMIDE [Suspect]
     Indication: SENSORY DISTURBANCE
     Dosage: 50 MG
  2. REMIFENTANIL HYDROCHLORIDE [Suspect]
     Indication: SENSORY DISTURBANCE
     Dosage: DF INTRAVENOUS (NOS)
     Route: 042
  3. PROPOFOL [Suspect]
     Indication: SENSORY DISTURBANCE
     Dosage: DF
  4. CEPHALOTHIN [Suspect]
     Indication: SENSORY DISTURBANCE
     Dosage: 2 G
  5. HYDROCORTISONE [Suspect]
     Indication: SENSORY DISTURBANCE
     Dosage: 100 MG
  6. GELOFUSINE [Suspect]
     Indication: SENSORY DISTURBANCE
     Dosage: DF
  7. VALPROIC ACID [Concomitant]
  8. DEXAMETHASONE [Concomitant]
  9. CITALOPRAM HYDROBROMIDE [Concomitant]

REACTIONS (6)
  - ANAPHYLACTOID REACTION [None]
  - CARDIAC ARREST [None]
  - ELECTROMECHANICAL DISSOCIATION [None]
  - HEMIPARESIS [None]
  - PROCEDURAL HYPOTENSION [None]
  - THERAPY NON-RESPONDER [None]
